FAERS Safety Report 21784426 (Version 1)
Quarter: 2022Q4

REPORT INFORMATION
  Report Type: Spontaneous
  Country: FR (occurrence: FR)
  Receive Date: 20221227
  Receipt Date: 20221227
  Transmission Date: 20230113
  Serious: Yes (Congenital Anomaly)
  Sender: FDA-Public Use
  Company Number: None

PATIENT

DRUGS (3)
  1. CLOBAZAM [Suspect]
     Active Substance: CLOBAZAM
     Indication: Generalised onset non-motor seizure
     Dosage: 10 MG, QD
     Route: 064
     Dates: start: 20220725, end: 20221004
  2. CLOBAZAM [Suspect]
     Active Substance: CLOBAZAM
     Dosage: 5 MG, QD
     Route: 064
     Dates: start: 20220318, end: 20220724
  3. FYCOMPA [Suspect]
     Active Substance: PERAMPANEL
     Indication: Generalised onset non-motor seizure
     Dosage: UNK
     Route: 064
     Dates: start: 20220111, end: 20220210

REACTIONS (2)
  - Foetal malnutrition [Not Recovered/Not Resolved]
  - Foetal exposure timing unspecified [Unknown]

NARRATIVE: CASE EVENT DATE: 20220801
